FAERS Safety Report 19714978 (Version 4)
Quarter: 2022Q4

REPORT INFORMATION
  Report Type: Report from Study
  Country: GB (occurrence: GB)
  Receive Date: 20210818
  Receipt Date: 20221205
  Transmission Date: 20230112
  Serious: Yes (Other)
  Sender: FDA-Public Use
  Company Number: NVSC2021GB178309

PATIENT
  Sex: Female

DRUGS (3)
  1. HYRIMOZ [Suspect]
     Active Substance: ADALIMUMAB-ADAZ
     Indication: Crohn^s disease
     Dosage: 40MG/0.8ML, ASD
     Route: 065
  2. HYRIMOZ [Suspect]
     Active Substance: ADALIMUMAB-ADAZ
     Dosage: 160MG W0, 80MG W2 AND 40MG THEREAFTE (FORTNIGHTLY)R
     Route: 058
  3. HYRIMOZ [Suspect]
     Active Substance: ADALIMUMAB-ADAZ
     Dosage: 40 MG, (EOW)
     Route: 058

REACTIONS (5)
  - Neoplasm malignant [Unknown]
  - Crohn^s disease [Unknown]
  - Joint swelling [Unknown]
  - Condition aggravated [Unknown]
  - Product supply issue [Unknown]
